FAERS Safety Report 9703556 (Version 8)
Quarter: 2014Q1

REPORT INFORMATION
  Report Type: Spontaneous
  Country: US (occurrence: US)
  Receive Date: 20131122
  Receipt Date: 20140207
  Transmission Date: 20141002
  Serious: No
  Sender: FDA-Public Use
  Company Number: US-PFIZER INC-2013330294

PATIENT
  Age: 57 Year
  Sex: Male
  Weight: 81.2 kg

DRUGS (6)
  1. XALKORI [Suspect]
     Indication: LUNG NEOPLASM MALIGNANT
     Dosage: 250 MG, 2X/DAY
     Route: 048
     Dates: start: 2011
  2. XALKORI [Suspect]
     Dosage: UNK
  3. XALKORI [Suspect]
     Dosage: UNK
  4. GABAPENTIN [Concomitant]
     Indication: NEUROPATHY PERIPHERAL
     Dosage: 1800 MG, 1X/DAY (SIX CAPSULES OF 300 MG)
     Route: 048
  5. COUMADIN [Concomitant]
     Dosage: UNK
  6. KEPPRA [Concomitant]
     Dosage: UNK

REACTIONS (5)
  - Disease progression [Unknown]
  - Lung neoplasm malignant [Unknown]
  - Visual impairment [Not Recovered/Not Resolved]
  - Malaise [Not Recovered/Not Resolved]
  - Product size issue [Unknown]
